FAERS Safety Report 11833769 (Version 1)
Quarter: 2015Q4

REPORT INFORMATION
  Report Type: Report from Study
  Country: BR (occurrence: BR)
  Receive Date: 20151214
  Receipt Date: 20151214
  Transmission Date: 20160305
  Serious: Yes (Death, Hospitalization)
  Sender: FDA-Public Use
  Company Number: PHHY2015BR156396

PATIENT
  Sex: Female
  Weight: 39 kg

DRUGS (1)
  1. EXELON PATCH [Suspect]
     Active Substance: RIVASTIGMINE
     Indication: DEMENTIA ALZHEIMER^S TYPE
     Dosage: PATCH 5 CM2
     Route: 062
     Dates: start: 20151123

REACTIONS (2)
  - Death [Fatal]
  - Abdominal pain [Unknown]
